FAERS Safety Report 4687092-X (Version None)
Quarter: 2005Q2

REPORT INFORMATION
  Report Type: 
  Country: None (occurrence: None)
  Receive Date: 20050607
  Receipt Date: 20050518
  Transmission Date: 20051028
  Serious: Yes (Hospitalization, Other)
  Sender: FDA-Public Use
  Company Number: US_0411107545

PATIENT
  Sex: Female
  Weight: 109 kg

DRUGS (5)
  1. ZYPREXA [Suspect]
     Indication: BIPOLAR DISORDER
     Dosage: 7.5 MG
     Dates: start: 19970101, end: 20040101
  2. ACTOS [Concomitant]
  3. DIVALPROEX SODIUM [Concomitant]
  4. GLYBURIDE [Concomitant]
  5. INSULIN [Concomitant]

REACTIONS (13)
  - ARTHRITIS [None]
  - BACK PAIN [None]
  - CARDIAC FAILURE CONGESTIVE [None]
  - CRYING [None]
  - DIABETES MELLITUS [None]
  - DIABETIC COMA [None]
  - DYSURIA [None]
  - HYPERTENSION [None]
  - INSOMNIA [None]
  - MANIA [None]
  - OBESITY [None]
  - PAIN [None]
  - URINARY INCONTINENCE [None]
